FAERS Safety Report 10158771 (Version 1)
Quarter: 2014Q2

REPORT INFORMATION
  Report Type: Spontaneous
  Country: US (occurrence: US)
  Receive Date: 20140508
  Receipt Date: 20140508
  Transmission Date: 20141212
  Serious: No
  Sender: FDA-Public Use
  Company Number: US-BIOGENIDEC-2014BI038337

PATIENT
  Sex: Female
  Weight: 53 kg

DRUGS (5)
  1. TECFIDERA [Suspect]
     Indication: MULTIPLE SCLEROSIS
     Route: 048
     Dates: start: 201312
  2. XANAX [Concomitant]
  3. VICODIN [Concomitant]
  4. ATENOLOL [Concomitant]
  5. PLAVIX [Concomitant]

REACTIONS (4)
  - Ear infection [Recovered/Resolved]
  - Myalgia [Unknown]
  - Feeling abnormal [Unknown]
  - Mobility decreased [Unknown]
